FAERS Safety Report 20743467 (Version 1)
Quarter: 2022Q2

REPORT INFORMATION
  Report Type: Spontaneous
  Country: US (occurrence: US)
  Receive Date: 20220425
  Receipt Date: 20220425
  Transmission Date: 20220721
  Serious: Yes (Congenital Anomaly, Other)
  Sender: FDA-Public Use
  Company Number: US-BRISTOL-MYERS SQUIBB COMPANY-2022-022136

PATIENT
  Age: 1 Day
  Sex: Male
  Weight: 2.1 kg

DRUGS (1)
  1. DASATINIB [Suspect]
     Active Substance: DASATINIB
     Indication: Product used for unknown indication
     Route: 064

REACTIONS (6)
  - Bicuspid aortic valve [Unknown]
  - Ventricular septal defect [Unknown]
  - Aorta hypoplasia [Unknown]
  - Atrial septal defect [Unknown]
  - Premature baby [Unknown]
  - Foetal exposure during pregnancy [Unknown]
